FAERS Safety Report 5301919-X (Version None)
Quarter: 2007Q2

REPORT INFORMATION
  Report Type: 
  Country: None (occurrence: None)
  Receive Date: 20070419
  Receipt Date: 20070416
  Transmission Date: 20071010
  Serious: Yes (Disabling)
  Sender: FDA-Public Use
  Company Number: DE-AVENTIS-200711008DE

PATIENT
  Age: 55 Year
  Sex: Female

DRUGS (1)
  1. TAXOTERE [Suspect]
     Indication: BREAST CANCER
     Dosage: DOSE: NOT REPORTED

REACTIONS (2)
  - CONDITION AGGRAVATED [None]
  - SPINAL MUSCULAR ATROPHY [None]
